FAERS Safety Report 6168621-6 (Version None)
Quarter: 2009Q2

REPORT INFORMATION
  Report Type: 
  Country: None (occurrence: None)
  Receive Date: 20090423
  Receipt Date: 20090417
  Transmission Date: 20091009
  Serious: Yes (Disabling)
  Sender: FDA-Public Use
  Company Number: 2008JP001233

PATIENT
  Age: 39 Year
  Sex: Female
  Weight: 61 kg

DRUGS (20)
  1. TACROLIMUS [Suspect]
     Indication: LUPUS NEPHRITIS
     Dosage: 3 MG, ORAL; 1 MG, ORAL
     Route: 048
     Dates: start: 20070213, end: 20080218
  2. TACROLIMUS [Suspect]
     Indication: LUPUS NEPHRITIS
     Dosage: 3 MG, ORAL; 1 MG, ORAL
     Route: 048
     Dates: start: 20080313, end: 20080822
  3. TACROLIMUS [Suspect]
     Indication: LUPUS NEPHRITIS
     Dosage: 3 MG, ORAL; 1 MG, ORAL
     Route: 048
     Dates: start: 20081204
  4. PREDNISOLONE [Suspect]
     Indication: LUPUS NEPHRITIS
     Dosage: SEE IMAGE
     Route: 048
     Dates: start: 20070112, end: 20070125
  5. PREDNISOLONE [Suspect]
     Indication: LUPUS NEPHRITIS
     Dosage: SEE IMAGE
     Route: 048
     Dates: start: 20070126, end: 20070129
  6. PREDNISOLONE [Suspect]
     Indication: LUPUS NEPHRITIS
     Dosage: SEE IMAGE
     Route: 048
     Dates: start: 20070130, end: 20070212
  7. PREDNISOLONE [Suspect]
     Indication: LUPUS NEPHRITIS
     Dosage: SEE IMAGE
     Route: 048
     Dates: start: 20070213, end: 20070303
  8. PREDNISOLONE [Suspect]
     Indication: LUPUS NEPHRITIS
     Dosage: SEE IMAGE
     Route: 048
     Dates: start: 20070304, end: 20070613
  9. PREDNISOLONE [Suspect]
     Indication: LUPUS NEPHRITIS
     Dosage: SEE IMAGE
     Route: 048
     Dates: start: 20070614, end: 20080312
  10. PREDNISOLONE [Suspect]
     Indication: LUPUS NEPHRITIS
     Dosage: SEE IMAGE
     Route: 048
     Dates: start: 20080312, end: 20080730
  11. PREDNISOLONE [Suspect]
     Indication: LUPUS NEPHRITIS
     Dosage: SEE IMAGE
     Route: 048
     Dates: start: 20080731, end: 20080825
  12. PREDNISOLONE [Suspect]
     Indication: LUPUS NEPHRITIS
     Dosage: SEE IMAGE
     Route: 048
     Dates: start: 20080826, end: 20081020
  13. PREDNISOLONE [Suspect]
     Indication: LUPUS NEPHRITIS
     Dosage: SEE IMAGE
     Route: 048
     Dates: start: 20081021
  14. BLOPRESS (CANDESARTAN CILEXETIL) PER ORAL NOS [Concomitant]
  15. ADALAT CR CONTROLLED RELEASE TABLET [Concomitant]
  16. SELBEX (TEPRENONE) PER ORAL NOS [Concomitant]
  17. CARDENALIN (DOXAZOSIN MESILATE) PER ORAL NOS [Concomitant]
  18. BEZATOL (BEZAFIBRATE) PER ORAL NOS [Concomitant]
  19. BAKTAR (SULFAMETHOXAZOLE, TRIMETHOPRIM) PER ORAL NOS [Concomitant]
  20. FERRUM (FERROUS GLUCONATE) PER ORAL NOS [Concomitant]

REACTIONS (2)
  - OSTEONECROSIS [None]
  - PYELONEPHRITIS [None]
